FAERS Safety Report 6784592-3 (Version None)
Quarter: 2010Q2

REPORT INFORMATION
  Report Type: 
  Country: None (occurrence: None)
  Receive Date: 20100622
  Receipt Date: 20100616
  Transmission Date: 20101027
  Serious: Yes (Hospitalization)
  Sender: FDA-Public Use
  Company Number: A0864050A

PATIENT
  Sex: Male

DRUGS (5)
  1. AVANDIA [Suspect]
     Indication: DIABETES MELLITUS
     Dosage: 8MG PER DAY
     Route: 048
     Dates: start: 20010101, end: 20051201
  2. AVANDAMET [Suspect]
     Indication: DIABETES MELLITUS
     Dosage: 1TAB TWICE PER DAY
     Route: 048
     Dates: start: 20031001, end: 20070101
  3. LEVITRA [Concomitant]
  4. MAVIK [Concomitant]
  5. AMARYL [Concomitant]

REACTIONS (5)
  - CARDIAC DISORDER [None]
  - CEREBROVASCULAR DISORDER [None]
  - GAIT DISTURBANCE [None]
  - HYPERTENSION [None]
  - PARALYSIS [None]
